FAERS Safety Report 16924942 (Version 1)
Quarter: 2019Q4

REPORT INFORMATION
  Report Type: Spontaneous
  Country: US (occurrence: US)
  Receive Date: 20190823
  Receipt Date: 20190823
  Transmission Date: 20200122
  Serious: No
  Sender: FDA-Public Use
  Company Number: None

PATIENT
  Age: 41 Year
  Sex: Male

DRUGS (2)
  1. DONG QUAI [Concomitant]
     Active Substance: ANGELICA SINENSIS ROOT
     Dates: start: 20190819, end: 20190819
  2. ADVATE [Suspect]
     Active Substance: ANTIHEMOPHILIC FACTOR, HUMAN RECOMBINANT
     Indication: FACTOR III DEFICIENCY
     Dosage: ?          OTHER FREQUENCY:UNKNOWN;?
     Route: 040
     Dates: start: 20190723

REACTIONS (2)
  - Muscular weakness [None]
  - Haemorrhage [None]

NARRATIVE: CASE EVENT DATE: 20190819
